FAERS Safety Report 17415084 (Version 2)
Quarter: 2020Q1

REPORT INFORMATION
  Report Type: Spontaneous
  Country: CO (occurrence: CO)
  Receive Date: 20200213
  Receipt Date: 20200302
  Transmission Date: 20200409
  Serious: Yes (Other)
  Sender: FDA-Public Use
  Company Number: CO-PFIZER INC-2019244947

PATIENT
  Age: 72 Year
  Sex: Female

DRUGS (3)
  1. REAMPLA [Suspect]
     Active Substance: PALBOCICLIB
     Indication: BREAST CANCER METASTATIC
     Dosage: 125 MG, UNK
     Route: 048
     Dates: start: 2018
  2. ANASTROZOLE. [Suspect]
     Active Substance: ANASTROZOLE
     Dosage: UNK
  3. REAMPLA [Suspect]
     Active Substance: PALBOCICLIB
     Dosage: 125 MG, UNK
     Route: 048
     Dates: start: 201901, end: 2019

REACTIONS (12)
  - Suicidal ideation [Unknown]
  - Arthralgia [Unknown]
  - Depression [Unknown]
  - Onychoclasis [Unknown]
  - Limb discomfort [Unknown]
  - Pain [Unknown]
  - Pruritus [Unknown]
  - Spinal pain [Unknown]
  - Malaise [Unknown]
  - Mobility decreased [Unknown]
  - Memory impairment [Unknown]
  - Gait disturbance [Unknown]

NARRATIVE: CASE EVENT DATE: 2019
